FAERS Safety Report 13181963 (Version 1)
Quarter: 2017Q1

REPORT INFORMATION
  Report Type: Spontaneous
  Country: US (occurrence: US)
  Receive Date: 20170202
  Receipt Date: 20170202
  Transmission Date: 20170428
  Serious: Yes (Disabling)
  Sender: FDA-Public Use
  Company Number: None

PATIENT
  Age: 44 Year
  Sex: Female
  Weight: 51.75 kg

DRUGS (5)
  1. VITAMIN D3 [Concomitant]
     Active Substance: CHOLECALCIFEROL
  2. OCEAN SALINE NASAL SPRAY [Suspect]
     Active Substance: SODIUM CHLORIDE
     Indication: SINUSITIS
     Dosage: ?          OTHER ROUTE:NASAL SPRAY?
  3. MAGNESIUM [Concomitant]
     Active Substance: MAGNESIUM
  4. OPCON-A [Suspect]
     Active Substance: NAPHAZOLINE HYDROCHLORIDE\PHENIRAMINE MALEATE
     Indication: DRY EYE
     Route: 047
  5. VITAMIN K2 [Concomitant]
     Active Substance: MENAQUINONE 6

REACTIONS (3)
  - Reaction to preservatives [None]
  - Hypersensitivity [None]
  - Dermatitis allergic [None]

NARRATIVE: CASE EVENT DATE: 20160301
